FAERS Safety Report 19024163 (Version 3)
Quarter: 2023Q1

REPORT INFORMATION
  Report Type: Spontaneous
  Country: IT (occurrence: IT)
  Receive Date: 20210318
  Receipt Date: 20230207
  Transmission Date: 20230418
  Serious: Yes (Life-Threatening, Hospitalization, Other)
  Sender: FDA-Public Use
  Company Number: IT-MLMSERVICE-20210304-2762293-1

PATIENT
  Age: 53 Year
  Sex: Female

DRUGS (4)
  1. ALPRAZOLAM [Suspect]
     Active Substance: ALPRAZOLAM
     Indication: Insomnia
     Dosage: UNK (REGULAR DOSE)
     Route: 065
  2. ALPRAZOLAM [Suspect]
     Active Substance: ALPRAZOLAM
     Dosage: UNK (OVERDOSE)
     Route: 065
  3. ZOLPIDEM TARTRATE [Suspect]
     Active Substance: ZOLPIDEM TARTRATE
     Indication: Insomnia
     Dosage: 9000 MILLIGRAM, TOTAL (30 BOTTLES OF 30 ML EACH CONTAINING 10 MG/ML OF ACTIVE INGREDIENT)
     Route: 048
  4. ZOLPIDEM TARTRATE [Suspect]
     Active Substance: ZOLPIDEM TARTRATE
     Indication: Suicidal ideation
     Dosage: UNK (REGULAR DOSE)
     Route: 065

REACTIONS (9)
  - Drug level increased [Recovered/Resolved]
  - Encephalopathy [Recovering/Resolving]
  - Coma [Recovering/Resolving]
  - Toxicity to various agents [Recovered/Resolved]
  - Intentional overdose [Recovered/Resolved]
  - Transaminases increased [Recovered/Resolved]
  - Suicidal ideation [Unknown]
  - Suicide attempt [Recovered/Resolved]
  - Therapy non-responder [Recovered/Resolved]
